FAERS Safety Report 9099325 (Version 1)
Quarter: 2013Q1

REPORT INFORMATION
  Report Type: Spontaneous
  Country: US (occurrence: US)
  Receive Date: 20130214
  Receipt Date: 20130214
  Transmission Date: 20140127
  Serious: No
  Sender: FDA-Public Use
  Company Number: US-BAYER-2013-012513

PATIENT
  Age: 80 Year
  Sex: Female
  Weight: 56.69 kg

DRUGS (3)
  1. ALEVE CAPLET/TABLET,MIDOL EXTENDED RELIEF CAPLET [Suspect]
     Route: 048
  2. TOPROL [Concomitant]
  3. EXFORGE [Concomitant]

REACTIONS (3)
  - Overdose [None]
  - Abdominal pain upper [None]
  - Nausea [None]
